FAERS Safety Report 4707025-7 (Version None)
Quarter: 2005Q3

REPORT INFORMATION
  Report Type: 
  Country: None (occurrence: None)
  Receive Date: 20050701
  Receipt Date: 20050701
  Transmission Date: 20060218
  Serious: Yes (Other)
  Sender: FDA-Public Use
  Company Number: None

PATIENT
  Sex: Male
  Weight: 111 kg

DRUGS (5)
  1. CETUXIMAB LOADING DOSE [Suspect]
     Dosage: 400/MGM2 WEEK 1 AND MAINTAINANCE DOSE OF 250MG/M2 WEEKLY FROM WEEK 2
     Dates: start: 20050315, end: 20050621
  2. RADIATION [Suspect]
  3. GEMZAR [Suspect]
     Dosage: 1000MG/M2 WEEKLY X 4 THEN EVERY WEEK X 3 WEEKS WITH THE 4TH WEEK REST
  4. TAXOL [Concomitant]
  5. CARBOPLATIN [Concomitant]

REACTIONS (7)
  - BALANCE DISORDER [None]
  - CONSTIPATION [None]
  - DYSPNOEA [None]
  - FALL [None]
  - FEELING COLD [None]
  - FOOT FRACTURE [None]
  - NEUTROPENIA [None]
